FAERS Safety Report 25915280 (Version 1)
Quarter: 2025Q4

REPORT INFORMATION
  Report Type: Report from Study
  Country: CN (occurrence: CN)
  Receive Date: 20251013
  Receipt Date: 20251013
  Transmission Date: 20260117
  Serious: Yes (Other)
  Sender: ROCHE
  Company Number: CN-ROCHE-10000382170

PATIENT
  Age: 52 Year
  Sex: Female
  Weight: 47 kg

DRUGS (21)
  1. POLATUZUMAB VEDOTIN [Suspect]
     Active Substance: POLATUZUMAB VEDOTIN
     Indication: Diffuse large B-cell lymphoma
     Dosage: MOST RECENT DOSE: 26-APR-2024
     Route: 042
     Dates: start: 20240426, end: 20240426
  2. ZUBERITAMAB [Suspect]
     Active Substance: ZUBERITAMAB
     Indication: Diffuse large B-cell lymphoma
     Dosage: MOST RECENT DOSE: 25-APR-2024
     Route: 042
     Dates: start: 20240425, end: 20240425
  3. DEXAMETHASONE [Suspect]
     Active Substance: DEXAMETHASONE
     Indication: Diffuse large B-cell lymphoma
     Dosage: MOST RECENT DOSE: 26-APR-2024
     Route: 042
     Dates: start: 20240426, end: 20240430
  4. MITOXANTRONE [Suspect]
     Active Substance: MITOXANTRONE HYDROCHLORIDE
     Indication: Diffuse large B-cell lymphoma
     Dosage: MOST RECENT DOSE: 26-APR-2024
     Route: 042
     Dates: start: 20240426, end: 20240426
  5. CYCLOPHOSPHAMIDE [Suspect]
     Active Substance: CYCLOPHOSPHAMIDE
     Indication: Diffuse large B-cell lymphoma
     Dosage: MOST RECENT DOSE: 26-APR-2024
     Route: 042
     Dates: start: 20240426, end: 20240426
  6. LENALIDOMIDE [Suspect]
     Active Substance: LENALIDOMIDE
     Indication: Diffuse large B-cell lymphoma
     Route: 065
  7. PANTOPRAZOLE SODIUM [Concomitant]
     Active Substance: PANTOPRAZOLE SODIUM
  8. GLUTATHIONE [Concomitant]
     Active Substance: GLUTATHIONE
  9. POTASSIUM CHLORIDE [Concomitant]
     Active Substance: POTASSIUM CHLORIDE
  10. VITAMIN B6 [Concomitant]
     Active Substance: PYRIDOXINE HYDROCHLORIDE
  11. SODIUM BICARBONATE [Concomitant]
     Active Substance: SODIUM BICARBONATE
  12. CALCIUM GLUCONATE [Concomitant]
     Active Substance: CALCIUM GLUCONATE
  13. PROMETHAZINE [Concomitant]
     Active Substance: PROMETHAZINE HYDROCHLORIDE
  14. ACETAMINOPHEN [Concomitant]
     Active Substance: ACETAMINOPHEN
  15. DEXRAZOXANE [Concomitant]
     Active Substance: DEXRAZOXANE
  16. MESNA [Concomitant]
     Active Substance: MESNA
  17. ONDANSETRON [Concomitant]
     Active Substance: ONDANSETRON
  18. FEBUXOSTAT [Concomitant]
     Active Substance: FEBUXOSTAT
  19. CHLORHEXIDINE GLUCONATE [Concomitant]
     Active Substance: CHLORHEXIDINE GLUCONATE
  20. OMEPRAZOLE [Concomitant]
     Active Substance: OMEPRAZOLE
  21. ENTECAVIR [Concomitant]
     Active Substance: ENTECAVIR

REACTIONS (1)
  - White blood cell count decreased [Recovered/Resolved]
